FAERS Safety Report 14384968 (Version 2)
Quarter: 2018Q1

REPORT INFORMATION
  Report Type: Spontaneous
  Country: FR (occurrence: FR)
  Receive Date: 20180115
  Receipt Date: 20180305
  Transmission Date: 20180509
  Serious: Yes (Death, Other)
  Sender: FDA-Public Use
  Company Number: FR-MYLANLABS-2018M1001245

PATIENT
  Sex: Female

DRUGS (2)
  1. ROPIVACAINE [Suspect]
     Active Substance: ROPIVACAINE
     Indication: EPIDURAL ANALGESIA
     Dosage: 2MG/ML
     Route: 008
  2. ROPIVACAINE [Suspect]
     Active Substance: ROPIVACAINE
     Dosage: 20ML OF ROPIVACAINE 7.5MG/ML FOR CONVERSION
     Route: 008

REACTIONS (5)
  - Dysgeusia [Unknown]
  - Cardiac arrest [Fatal]
  - Toxicity to various agents [Fatal]
  - Exposure during pregnancy [Unknown]
  - Agitation [Unknown]
